FAERS Safety Report 6766091-8 (Version None)
Quarter: 2010Q2

REPORT INFORMATION
  Report Type: 
  Country: None (occurrence: None)
  Receive Date: 20100611
  Receipt Date: 20100528
  Transmission Date: 20101027
  Serious: Yes (Hospitalization, Other)
  Sender: FDA-Public Use
  Company Number: PHHY2010CZ29748

PATIENT
  Sex: Female

DRUGS (3)
  1. ZOMETA [Suspect]
     Indication: CERVIX CARCINOMA STAGE IV
     Dosage: UNK
     Dates: start: 20040301, end: 20060401
  2. LANZUL [Concomitant]
  3. RANISAN [Concomitant]

REACTIONS (5)
  - JAW FRACTURE [None]
  - JAW OPERATION [None]
  - MOVEMENT DISORDER [None]
  - OSTEONECROSIS OF JAW [None]
  - PELVIC PAIN [None]
